FAERS Safety Report 6362356-2 (Version None)
Quarter: 2009Q3

REPORT INFORMATION
  Report Type: 
  Country: None (occurrence: None)
  Receive Date: 20090918
  Receipt Date: 20090708
  Transmission Date: 20100115
  Serious: No
  Sender: FDA-Public Use
  Company Number: PR-ABBOTT-09P-131-0584288-00

PATIENT
  Sex: Female

DRUGS (5)
  1. HUMIRA [Suspect]
     Indication: PSORIATIC ARTHROPATHY
     Dosage: 1 SYRINGE
     Route: 058
     Dates: start: 20080601
  2. DIOVAN [Concomitant]
     Indication: HYPERTENSION
     Dosage: 300/25 MILLIGRAMS (1 TABLET)
     Route: 048
  3. SYNTHROID [Concomitant]
     Indication: HYPOTHYROIDISM
     Dosage: 1 TABLET DAILY
     Route: 048
  4. ATENOLOL [Concomitant]
     Indication: HYPERTENSION
     Route: 048
  5. NORVASC [Concomitant]
     Indication: HYPERTENSION
     Route: 048

REACTIONS (5)
  - ABASIA [None]
  - DRUG INEFFECTIVE [None]
  - ERYTHEMA [None]
  - LOCAL SWELLING [None]
  - PAIN IN EXTREMITY [None]
